FAERS Safety Report 7115076-0 (Version None)
Quarter: 2010Q4

REPORT INFORMATION
  Report Type: 
  Country: None (occurrence: None)
  Receive Date: 20101122
  Receipt Date: 20101108
  Transmission Date: 20110411
  Serious: Yes (Hospitalization)
  Sender: FDA-Public Use
  Company Number: AT-RANBAXY-2010R1-39534

PATIENT

DRUGS (1)
  1. MINOCYCLINE HCL [Suspect]
     Indication: FOLLICULITIS
     Dosage: 50 MG/DAY.
     Route: 065

REACTIONS (1)
  - CYTOTOXIC OEDEMA [None]
